FAERS Safety Report 16191779 (Version 2)
Quarter: 2019Q2

REPORT INFORMATION
  Report Type: Spontaneous
  Country: GB (occurrence: GB)
  Receive Date: 20190412
  Receipt Date: 20190424
  Transmission Date: 20190711
  Serious: Yes (Other)
  Sender: FDA-Public Use
  Company Number: GB-GUERBET-GB-20190067

PATIENT
  Sex: Female

DRUGS (1)
  1. OPTIRAY 300 [Suspect]
     Active Substance: IOVERSOL
     Indication: COMPUTERISED TOMOGRAM
     Route: 065
     Dates: start: 20190326, end: 20190326

REACTIONS (4)
  - Hypotension [Recovered/Resolved]
  - Cardiovascular disorder [Recovered/Resolved]
  - Pharyngeal swelling [Recovered/Resolved]
  - Rash pruritic [Not Recovered/Not Resolved]
